FAERS Safety Report 21343803 (Version 1)
Quarter: 2022Q3

REPORT INFORMATION
  Report Type: Spontaneous
  Country: US (occurrence: US)
  Receive Date: 20220916
  Receipt Date: 20220916
  Transmission Date: 20221026
  Serious: No
  Sender: FDA-Public Use
  Company Number: US-SA-2022SA381535

PATIENT
  Age: 81 Year
  Sex: Male

DRUGS (6)
  1. PLAVIX [Suspect]
     Active Substance: CLOPIDOGREL BISULFATE
     Indication: Product used for unknown indication
     Dosage: UNK
  2. ENZALUTAMIDE [Suspect]
     Active Substance: ENZALUTAMIDE
     Indication: Product used for unknown indication
     Dosage: 160 MG, QD
     Route: 048
     Dates: start: 20191015
  3. ENZALUTAMIDE [Suspect]
     Active Substance: ENZALUTAMIDE
     Dosage: 160 MG, QD
     Route: 048
     Dates: start: 20200716
  4. ENZALUTAMIDE [Suspect]
     Active Substance: ENZALUTAMIDE
     Dosage: 80 MG, QD
     Route: 048
  5. ENZALUTAMIDE [Suspect]
     Active Substance: ENZALUTAMIDE
     Dosage: 40 MG, QD
     Route: 048
     Dates: start: 20201125, end: 20220326
  6. ENZALUTAMIDE [Suspect]
     Active Substance: ENZALUTAMIDE
     Dosage: 40 MG, QD
     Route: 048
     Dates: start: 20220609

REACTIONS (6)
  - Asthenia [Recovered/Resolved]
  - Dizziness [Recovered/Resolved]
  - Cardiac disorder [Unknown]
  - Ageusia [Unknown]
  - Drug interaction [Unknown]
  - Off label use [Unknown]
